FAERS Safety Report 9332762 (Version 1)
Quarter: 2013Q2

REPORT INFORMATION
  Report Type: Spontaneous
  Country: US (occurrence: US)
  Receive Date: 20130606
  Receipt Date: 20130606
  Transmission Date: 20140414
  Serious: Yes (Hospitalization, Other)
  Sender: FDA-Public Use
  Company Number: US-PFIZER INC-2013166405

PATIENT
  Age: 47 Year
  Sex: Male

DRUGS (2)
  1. ADRIAMYCIN [Suspect]
     Dosage: UNK
  2. REVLIMID [Suspect]
     Indication: LYMPHOMA
     Dosage: 25 MG, 1X/DAY
     Route: 048
     Dates: start: 201207, end: 2013

REACTIONS (1)
  - Cardiac failure congestive [Unknown]
